FAERS Safety Report 6481474-1 (Version None)
Quarter: 2009Q4

REPORT INFORMATION
  Report Type: 
  Country: None (occurrence: None)
  Receive Date: 20091208
  Receipt Date: 20091126
  Transmission Date: 20100525
  Serious: Yes (Hospitalization)
  Sender: FDA-Public Use
  Company Number: JP-ELI_LILLY_AND_COMPANY-JP200908004215

PATIENT
  Sex: Male
  Weight: 53.4 kg

DRUGS (25)
  1. PEMETREXED [Suspect]
     Indication: NON-SMALL CELL LUNG CANCER
     Dosage: 810 MG, 3/W
     Route: 042
     Dates: start: 20090617, end: 20090731
  2. PEMETREXED [Suspect]
     Dosage: 385 MG, UNKNOWN
     Route: 042
     Dates: start: 20091001
  3. CISPLATIN [Suspect]
     Indication: NON-SMALL CELL LUNG CANCER
     Dosage: 90 MG, 3/W
     Route: 042
     Dates: start: 20090617, end: 20090617
  4. CISPLATIN [Suspect]
     Dosage: 67.5 MG, 3/W
     Route: 042
     Dates: start: 20090710, end: 20090731
  5. CISPLATIN [Suspect]
     Dosage: 86 MG, OTHER
     Route: 042
     Dates: start: 20091001
  6. AG-013736(AXITINIB) [Suspect]
     Indication: NON-SMALL CELL LUNG CANCER
     Dosage: 5 MG, 2/D
     Route: 048
     Dates: start: 20090617, end: 20090809
  7. OXYCONTIN [Concomitant]
     Indication: PAIN
     Route: 048
     Dates: start: 20090513, end: 20090807
  8. OPSO [Concomitant]
     Indication: PAIN
     Route: 048
     Dates: start: 20090521
  9. COBALAMIN [Concomitant]
     Indication: PROPHYLAXIS
     Dosage: UNK, UNK
     Route: 030
     Dates: start: 20090529
  10. PANVITAN [Concomitant]
     Indication: PROPHYLAXIS
     Route: 048
     Dates: start: 20090529
  11. CALONAL [Concomitant]
     Indication: PAIN
     Route: 048
     Dates: start: 20090612
  12. GABAPEN [Concomitant]
     Indication: PAIN
     Route: 048
     Dates: start: 20090622
  13. THYRADIN S [Concomitant]
     Indication: BLOOD THYROID STIMULATING HORMONE INCREASED
     Route: 048
     Dates: start: 20090708
  14. MAGLAX [Concomitant]
     Indication: CONSTIPATION
     Route: 048
     Dates: start: 20090716
  15. PRIMPERAN /00041901/ [Concomitant]
     Indication: NAUSEA
     Route: 048
     Dates: start: 20090718
  16. ATARAX [Concomitant]
     Indication: ABDOMINAL PAIN
     Dates: start: 20090101
  17. SENNOSIDE [Concomitant]
     Indication: CONSTIPATION
     Route: 048
     Dates: start: 20090720
  18. MONILAC [Concomitant]
     Indication: CONSTIPATION
     Dosage: UNK, UNK
     Route: 048
     Dates: start: 20090101, end: 20090716
  19. MONILAC [Concomitant]
     Dates: start: 20090723
  20. GAMOFA [Concomitant]
     Indication: ABDOMINAL PAIN
     Route: 048
     Dates: start: 20090731
  21. ZOFRAN [Concomitant]
     Indication: NAUSEA
     Route: 048
     Dates: start: 20090801
  22. DUROTEP [Concomitant]
     Indication: PAIN
     Route: 062
     Dates: start: 20090807
  23. BUSCOPAN [Concomitant]
     Indication: ABDOMINAL PAIN
     Route: 042
     Dates: start: 20090809
  24. BUSCOPAN [Concomitant]
     Route: 048
     Dates: start: 20090809
  25. HACHIAZULE [Concomitant]
     Indication: STOMATITIS
     Route: 050
     Dates: start: 20090809

REACTIONS (3)
  - ENTERITIS [None]
  - PNEUMONIA [None]
  - SMALL INTESTINE ULCER [None]
